FAERS Safety Report 6906295-4 (Version None)
Quarter: 2010Q3

REPORT INFORMATION
  Report Type: 
  Country: None (occurrence: None)
  Receive Date: 20100804
  Receipt Date: 20100726
  Transmission Date: 20110219
  Serious: Yes (Other)
  Sender: FDA-Public Use
  Company Number: US-ABBOTT-10P-163-0641162-00

PATIENT
  Sex: Female
  Weight: 77.18 kg

DRUGS (17)
  1. NIASPAN [Suspect]
     Indication: HYPERLIPIDAEMIA
     Route: 048
     Dates: start: 20100401, end: 20100712
  2. NIASPAN [Suspect]
     Indication: BLOOD CHOLESTEROL INCREASED
  3. BUMETANIDE [Concomitant]
     Indication: DIURETIC THERAPY
     Route: 048
  4. RAMIPRIL [Concomitant]
     Indication: HYPERTENSION
     Route: 048
  5. VITAMIN D [Concomitant]
     Indication: VITAMIN SUPPLEMENTATION
     Route: 048
  6. GLYBURIDE [Concomitant]
     Indication: PRODUCT USED FOR UNKNOWN INDICATION
  7. CARVEDILOL [Concomitant]
     Indication: HYPERTENSION
     Route: 048
  8. METOLAZONE [Concomitant]
     Indication: DIURETIC THERAPY
     Route: 048
  9. SIMVASTATIN [Concomitant]
     Indication: BLOOD CHOLESTEROL
     Route: 048
  10. MAGNESIUM [Concomitant]
     Indication: MINERAL SUPPLEMENTATION
     Route: 048
  11. CALCIUM [Concomitant]
     Indication: MINERAL SUPPLEMENTATION
     Route: 048
  12. CINNAMON [Concomitant]
     Indication: MEDICAL DIET
     Route: 048
  13. FISH OIL [Concomitant]
     Indication: SUPPLEMENTATION THERAPY
     Route: 048
  14. ICAPS [Concomitant]
     Indication: VITAMIN SUPPLEMENTATION
     Route: 048
  15. ASPIRIN [Concomitant]
     Indication: PROPHYLAXIS
     Route: 048
     Dates: start: 20100401, end: 20100712
  16. ASPIRIN [Concomitant]
     Indication: FLUSHING
  17. GLIMIPERIDE [Concomitant]
     Indication: DIABETES MELLITUS
     Route: 048

REACTIONS (3)
  - FLUSHING [None]
  - NEUROENDOCRINE CARCINOMA OF THE SKIN [None]
  - SKIN BURNING SENSATION [None]
